FAERS Safety Report 8477120 (Version 4)
Quarter: 2012Q4

REPORT INFORMATION
  Report Type: 
  Country: US (occurrence: US)
  Receive Date: 20120326
  Receipt Date: 20121105
  Transmission Date: 20130627
  Serious: Yes (Hospitalization, Disabling, Other)
  Sender: FDA-Public Use
  Company Number: US-009507513-1203USA02842

PATIENT

DRUGS (4)
  1. FOSAMAX [Suspect]
     Indication: OSTEOPOROSIS
     Dosage: 70 mg, UNK
     Route: 048
     Dates: start: 20050606, end: 200611
  2. FOSAMAX PLUS D [Suspect]
     Indication: OSTEOPOROSIS
     Dosage: 70mg/2800
     Route: 048
     Dates: start: 20061222, end: 200802
  3. FOSAMAX [Suspect]
     Indication: OSTEOPOROSIS
     Dosage: 70 mg, UNK
     Route: 048
     Dates: start: 20080304, end: 20100301
  4. VITAMIN D (UNSPECIFIED) [Concomitant]
     Indication: OSTEOPOROSIS
     Dosage: UNK
     Route: 048
     Dates: start: 200802

REACTIONS (19)
  - Femur fracture [Recovered/Resolved]
  - Open reduction of fracture [Recovered/Resolved]
  - Uterine leiomyoma [Unknown]
  - Osteopenia [Unknown]
  - Low turnover osteopathy [Unknown]
  - Vitamin D deficiency [Unknown]
  - Hormone level abnormal [Unknown]
  - Biopsy breast [Unknown]
  - Anaemia [Unknown]
  - Bone disorder [Unknown]
  - Asthenia [Unknown]
  - Hyperlipidaemia [Unknown]
  - Sensory level [Unknown]
  - Fatigue [Unknown]
  - Psoriasis [Unknown]
  - Hysterectomy [Unknown]
  - Cataract [Unknown]
  - Pain in extremity [Unknown]
  - Arthralgia [Unknown]
